FAERS Safety Report 5551134-X (Version None)
Quarter: 2007Q4

REPORT INFORMATION
  Report Type: 
  Country: None (occurrence: None)
  Receive Date: 20071212
  Receipt Date: 20071210
  Transmission Date: 20080405
  Serious: Yes (Hospitalization)
  Sender: FDA-Public Use
  Company Number: B0498913A

PATIENT
  Age: 43 Year
  Sex: Male

DRUGS (8)
  1. ZOVIRAX [Suspect]
     Indication: HERPES ZOSTER
     Dosage: 200MG PER DAY
     Route: 048
     Dates: start: 20071126, end: 20071130
  2. ISCOTIN [Concomitant]
     Route: 065
  3. RIFADIN [Concomitant]
     Route: 048
  4. PYDOXAL [Concomitant]
     Route: 065
  5. ARTIST [Concomitant]
     Route: 048
  6. DOXAZOSIN MESYLATE [Concomitant]
     Route: 048
  7. ADALAT [Concomitant]
     Route: 048
  8. GASTER [Concomitant]
     Route: 065

REACTIONS (1)
  - PANCREATITIS ACUTE [None]
